FAERS Safety Report 7690754 (Version 10)
Quarter: 2014Q1

REPORT INFORMATION
  Report Type: Spontaneous
  Country: FR (occurrence: FR)
  Receive Date: 20101203
  Receipt Date: 20140205
  Transmission Date: 20141002
  Serious: Yes (Hospitalization, Disabling, Other)
  Sender: FDA-Public Use
  Company Number: FR-PFIZER INC-2010157460

PATIENT
  Age: 41 Year
  Sex: Male
  Weight: 97 kg

DRUGS (4)
  1. TAHOR [Suspect]
     Dosage: 40 MG, UNK
     Dates: start: 20070403, end: 20080929
  2. KARDEGIC [Concomitant]
  3. CARDENSIEL [Concomitant]
     Indication: HYPERTENSION
  4. APROVEL [Concomitant]
     Indication: HYPERTENSION

REACTIONS (4)
  - Pancreatitis necrotising [Recovered/Resolved with Sequelae]
  - Abdominal wound dehiscence [Recovered/Resolved]
  - Pyelonephritis [Recovered/Resolved]
  - Pancreatic fistula [Not Recovered/Not Resolved]
